FAERS Safety Report 11145532 (Version 1)
Quarter: 2015Q2

REPORT INFORMATION
  Report Type: Not Available
  Country: US (occurrence: US)
  Receive Date: 20150526
  Receipt Date: 20150526
  Transmission Date: 20150821
  Serious: Yes (Other)
  Sender: FDA-Public Use
  Company Number: US-LUPIN PHARMACEUTICALS INC.-E2B_00003506

PATIENT
  Age: 11 Year
  Sex: Male

DRUGS (1)
  1. CEFUROXIME AXETIL TABLETS USP 250 MG (CEFUROXIME AXETIL) INFECTION [Suspect]
     Active Substance: CEFUROXIME AXETIL
     Indication: INFECTION
     Dosage: 500 MG
     Dates: start: 20150323, end: 20150324

REACTIONS (2)
  - Seizure [Unknown]
  - Rash [Unknown]

NARRATIVE: CASE EVENT DATE: 20150324
